FAERS Safety Report 6740771-2 (Version None)
Quarter: 2010Q2

REPORT INFORMATION
  Report Type: 
  Country: None (occurrence: None)
  Receive Date: 20100524
  Receipt Date: 20100209
  Transmission Date: 20101027
  Serious: Yes (Other)
  Sender: FDA-Public Use
  Company Number: AUR-APL-2010-00420

PATIENT
  Age: 53 Year
  Sex: Female

DRUGS (1)
  1. ALENDRONATE [Suspect]

REACTIONS (2)
  - BLOOD CALCIUM DECREASED [None]
  - FEMUR FRACTURE [None]
